FAERS Safety Report 20232026 (Version 1)
Quarter: 2021Q4

REPORT INFORMATION
  Report Type: Report from Study
  Country: GB (occurrence: GB)
  Receive Date: 20211227
  Receipt Date: 20211227
  Transmission Date: 20220303
  Serious: Yes (Death)
  Sender: FDA-Public Use
  Company Number: GB-CELGENE-GBR-20211206582

PATIENT
  Age: 90 Year
  Sex: Male

DRUGS (3)
  1. LENALIDOMIDE [Suspect]
     Active Substance: LENALIDOMIDE
     Indication: Follicular lymphoma
     Dosage: 15 MILLIGRAM
     Route: 048
     Dates: end: 202103
  2. RITUXIMAB [Suspect]
     Active Substance: RITUXIMAB
     Indication: Follicular lymphoma
     Dosage: 3 DOSES
     Route: 065
     Dates: end: 202103
  3. R CVP [Concomitant]
     Indication: Follicular lymphoma
     Dosage: 5 DOSES
     Route: 065
     Dates: start: 201804, end: 201807

REACTIONS (1)
  - Follicular lymphoma stage III [Fatal]

NARRATIVE: CASE EVENT DATE: 20190201
